FAERS Safety Report 5748845-X (Version None)
Quarter: 2008Q2

REPORT INFORMATION
  Report Type: 
  Country: None (occurrence: None)
  Receive Date: 20080522
  Receipt Date: 20080506
  Transmission Date: 20081010
  Serious: Yes (Hospitalization)
  Sender: FDA-Public Use
  Company Number: 027652

PATIENT
  Age: 17 Year
  Sex: Male

DRUGS (2)
  1. CLARAVIS [Suspect]
     Indication: ACNE CYSTIC
     Dosage: 20 MG, TID, ORAL; 40 MG, BID, ORAL
     Route: 048
     Dates: start: 20071203, end: 20080107
  2. CLARAVIS [Suspect]
     Indication: ACNE CYSTIC
     Dosage: 20 MG, TID, ORAL; 40 MG, BID, ORAL
     Route: 048
     Dates: start: 20080108, end: 20080421

REACTIONS (2)
  - ANAPLASTIC ASTROCYTOMA [None]
  - HEADACHE [None]
